FAERS Safety Report 6544057-0 (Version None)
Quarter: 2010Q1

REPORT INFORMATION
  Report Type: 
  Country: None (occurrence: None)
  Receive Date: 20100119
  Receipt Date: 20100119
  Transmission Date: 20100710
  Serious: Yes (Hospitalization)
  Sender: FDA-Public Use
  Company Number: None

PATIENT
  Age: 51 Year
  Sex: Female
  Weight: 65.7716 kg

DRUGS (1)
  1. TYLENOL (CAPLET) [Suspect]
     Indication: PYREXIA
     Dosage: 2 TABS TAKEN ONCE PO
     Route: 048
     Dates: start: 20100112, end: 20100112

REACTIONS (8)
  - ABDOMINAL PAIN UPPER [None]
  - DEHYDRATION [None]
  - DIARRHOEA [None]
  - LOSS OF CONSCIOUSNESS [None]
  - MALAISE [None]
  - NAUSEA [None]
  - UNRESPONSIVE TO STIMULI [None]
  - VOMITING [None]
